FAERS Safety Report 9227493 (Version 1)
Quarter: 2013Q2

REPORT INFORMATION
  Report Type: Spontaneous
  Country: US (occurrence: None)
  Receive Date: 20130411
  Receipt Date: 20130411
  Transmission Date: 20140414
  Serious: Yes (Hospitalization)
  Sender: FDA-Public Use
  Company Number: None

PATIENT
  Age: 84 Year
  Sex: Male
  Weight: 95.6 kg

DRUGS (12)
  1. VISIPAQUE [Suspect]
     Indication: CATHETERISATION CARDIAC
     Dosage: RECENT
     Route: 042
  2. CELEBREX [Suspect]
     Indication: PAIN
     Dosage: CHRONIC
     Route: 048
  3. HEPARIN [Concomitant]
  4. O2 [Concomitant]
  5. FENTANYL [Concomitant]
  6. VERSED [Concomitant]
  7. CELEXA [Concomitant]
  8. ZETIA [Concomitant]
  9. GLIMEPIRIDE [Concomitant]
  10. LABETOLOL [Concomitant]
  11. FELDIPINE [Concomitant]
  12. CELEBREX [Concomitant]

REACTIONS (6)
  - Renal failure acute [None]
  - Contrast media reaction [None]
  - Dyspnoea [None]
  - Cardiac arrest [None]
  - Hypoperfusion [None]
  - Hypotension [None]
